FAERS Safety Report 6672385-7 (Version None)
Quarter: 2010Q2

REPORT INFORMATION
  Report Type: 
  Country: None (occurrence: None)
  Receive Date: 20100408
  Receipt Date: 20100330
  Transmission Date: 20101027
  Serious: Yes (Other)
  Sender: FDA-Public Use
  Company Number: US-JNJFOC-20100301591

PATIENT
  Sex: Male
  Weight: 62.6 kg

DRUGS (9)
  1. FENTANYL CITRATE [Suspect]
     Indication: NEURALGIA
     Route: 062
  2. FENTANYL CITRATE [Suspect]
     Indication: PAIN
     Route: 062
  3. FENTANYL CITRATE [Suspect]
     Route: 062
  4. TIZANIDINE HCL [Concomitant]
     Route: 065
  5. DILANTIN [Concomitant]
     Indication: CONVULSION
     Route: 048
  6. LORAZEPAM [Concomitant]
     Indication: CONVULSION PROPHYLAXIS
     Route: 048
  7. CYMBALTA [Concomitant]
     Route: 065
  8. LEVOTHYROXINE SODIUM [Concomitant]
     Route: 065
  9. OXYCODONE [Concomitant]
     Route: 065

REACTIONS (6)
  - DEVICE LEAKAGE [None]
  - DEVICE MALFUNCTION [None]
  - HYPERVENTILATION [None]
  - NONSPECIFIC REACTION [None]
  - PRODUCT QUALITY ISSUE [None]
  - SOMNOLENCE [None]
